FAERS Safety Report 18924384 (Version 1)
Quarter: 2021Q1

REPORT INFORMATION
  Report Type: Spontaneous
  Country: FR (occurrence: FR)
  Receive Date: 20210223
  Receipt Date: 20210223
  Transmission Date: 20210420
  Serious: Yes (Hospitalization)
  Sender: FDA-Public Use
  Company Number: FR-EXELIXIS-CABO-21036977

PATIENT
  Age: 70 Year
  Sex: Male
  Weight: 68 kg

DRUGS (3)
  1. CABOMETYX [Suspect]
     Active Substance: CABOZANTINIB S-MALATE
     Dosage: 60 MG, QD
     Route: 048
     Dates: start: 20200907, end: 20201119
  2. CABOMETYX [Suspect]
     Active Substance: CABOZANTINIB S-MALATE
     Indication: HEPATOCELLULAR CARCINOMA
     Dosage: 40 MG, QD
     Route: 048
     Dates: start: 20200805
  3. CABOMETYX [Suspect]
     Active Substance: CABOZANTINIB S-MALATE
     Dosage: 40 MG, QD
     Route: 048
     Dates: start: 20201217

REACTIONS (11)
  - Dysphagia [Recovered/Resolved]
  - Aphonia [Recovered/Resolved]
  - Renal failure [Recovered/Resolved]
  - Weight decreased [Recovered/Resolved]
  - Synovial cyst [Unknown]
  - General physical health deterioration [Recovered/Resolved]
  - Prostatitis [Recovered/Resolved]
  - Hyponatraemia [Recovered/Resolved]
  - Candida infection [Recovered/Resolved]
  - Dehydration [Recovered/Resolved]
  - Confusional state [Recovered/Resolved]

NARRATIVE: CASE EVENT DATE: 20201119
